FAERS Safety Report 10024163 (Version 2)
Quarter: 2014Q1

REPORT INFORMATION
  Report Type: Spontaneous
  Country: US (occurrence: US)
  Receive Date: 20140320
  Receipt Date: 20140324
  Transmission Date: 20141002
  Serious: No
  Sender: FDA-Public Use
  Company Number: US-PFIZER INC-2014078464

PATIENT
  Sex: Male
  Weight: 99.77 kg

DRUGS (3)
  1. LIPITOR [Suspect]
     Indication: BLOOD CHOLESTEROL ABNORMAL
     Dosage: UNK
     Dates: start: 2009, end: 201211
  2. JANUMET [Concomitant]
     Indication: DIABETES MELLITUS
     Dosage: METFORMIN HYDROCHLORIDE 1000 MG/ SITAGLIPTIN PHOSPHATE MONOHYDRATE 50MG, 2 X DAY
  3. AMARYL [Concomitant]
     Indication: DIABETES MELLITUS
     Dosage: 4 MG, DAILY

REACTIONS (2)
  - Fatigue [Not Recovered/Not Resolved]
  - Myalgia [Not Recovered/Not Resolved]
